FAERS Safety Report 9095825 (Version 5)
Quarter: 2013Q2

REPORT INFORMATION
  Report Type: Spontaneous
  Country: US (occurrence: US)
  Receive Date: 20130220
  Receipt Date: 20130530
  Transmission Date: 20140414
  Serious: Yes (Other)
  Sender: FDA-Public Use
  Company Number: US-PFIZER INC-2013061618

PATIENT
  Age: 66 Year
  Sex: Female
  Weight: 89.62 kg

DRUGS (18)
  1. LYRICA [Suspect]
     Indication: FIBROMYALGIA
     Dosage: UNK
     Dates: start: 2007
  2. LYRICA [Suspect]
     Indication: SPINAL PAIN
     Dosage: UNK
     Dates: start: 2008
  3. LYRICA [Suspect]
     Indication: BACK PAIN
     Dosage: 150 MG, 3X/DAY
     Route: 048
  4. LYRICA [Suspect]
     Indication: PAIN
  5. LORTAB [Suspect]
     Indication: PAIN
     Dosage: 5 MG, 1-2 TABLETS 6-8 HRS PRN
     Route: 048
     Dates: start: 20080721
  6. CYMBALTA [Concomitant]
     Dosage: 60 MG, 2X/DAY
     Route: 048
     Dates: start: 20090508
  7. CYMBALTA [Concomitant]
     Dosage: 60 MG, 1X/DAY
     Route: 048
  8. LEVOTHYROXINE [Concomitant]
     Indication: HYPOTHYROIDISM
     Dosage: 88 UG, 1X/DAY
     Route: 048
     Dates: start: 20100810
  9. CALTRATE WITH VITAMIN D [Concomitant]
     Indication: MINERAL SUPPLEMENTATION
     Dosage: 600 MG/4OO IU TWICE DAILY
     Dates: start: 20100708
  10. XANAX [Concomitant]
     Indication: ANXIETY
     Dosage: 0.25 MG, 1-2 TABLETS Q DAILY PRN
     Route: 048
     Dates: start: 20100427
  11. DITROPAN [Concomitant]
     Dosage: 5 MG, 2X/DAY
     Route: 048
     Dates: start: 20100201
  12. TRANXENE [Concomitant]
     Dosage: 7.5 MG, ONE TABLET AT NIGHT
     Route: 048
     Dates: start: 20081208
  13. ZYRTEC [Concomitant]
     Dosage: 10 MG, 1X/DAY
     Route: 048
     Dates: start: 20080417
  14. ZEGERID [Concomitant]
     Dosage: 40 MG, 1X/DAY
     Route: 048
     Dates: start: 20080721
  15. FLONASE [Concomitant]
     Dosage: NAS 2 SPRAYS EACH NOSTRIL Q DAILY
     Dates: start: 20071207
  16. LIPITOR [Concomitant]
     Dosage: 40 MG, 1X/DAY (QHS)
     Route: 048
     Dates: start: 20070727
  17. OMEGA 3 [Concomitant]
     Indication: BLOOD CHOLESTEROL ABNORMAL
     Dosage: 1 DF, 2X/DAY
     Dates: start: 20060918
  18. VASERETIC [Concomitant]
     Dosage: 1 DF, 1X/DAY
     Route: 048
     Dates: start: 20031110

REACTIONS (14)
  - General physical health deterioration [Unknown]
  - Eye infection [Unknown]
  - Movement disorder [Unknown]
  - Dysgraphia [Unknown]
  - Activities of daily living impaired [Unknown]
  - Amnesia [Unknown]
  - Jaw disorder [Unknown]
  - Cerebrovascular accident [Unknown]
  - Visual impairment [Unknown]
  - Vision blurred [Unknown]
  - Drug ineffective [Unknown]
  - Body height decreased [Unknown]
  - Dry eye [Unknown]
  - Weight decreased [Unknown]
